FAERS Safety Report 5948014-4 (Version None)
Quarter: 2008Q4

REPORT INFORMATION
  Report Type: 
  Country: None (occurrence: None)
  Receive Date: 20081107
  Receipt Date: 20081023
  Transmission Date: 20090506
  Serious: Yes (Hospitalization, Other)
  Sender: FDA-Public Use
  Company Number: FON_00012_2008

PATIENT
  Age: 75 Year
  Sex: Female

DRUGS (9)
  1. ROCALTROL [Suspect]
     Indication: OSTEOPOROSIS
     Dosage: (0.5 ?G QD ORAL)
     Route: 048
     Dates: start: 20080501, end: 20080801
  2. BONVIVA /01304701/ (BONVIVA - IBANDRONIC ACID) 150 MG (NOT SPECIFIED) [Suspect]
     Indication: OSTEOPOROSIS
     Dosage: (150 MG 1X/MONTH ORAL)
     Route: 048
     Dates: start: 20060801
  3. SERTRALINE [Concomitant]
  4. VYTORIN [Concomitant]
  5. NOVALGINA [Concomitant]
  6. OMEPRAZOLE [Concomitant]
  7. RIVOTRIL [Concomitant]
  8. EXELON /01383201/ [Concomitant]
  9. ONDANSETRON [Concomitant]

REACTIONS (22)
  - ANAEMIA [None]
  - ARTHRALGIA [None]
  - BONE PAIN [None]
  - DIARRHOEA [None]
  - FALL [None]
  - HYPERPARATHYROIDISM [None]
  - HYPOPHAGIA [None]
  - HYPOVITAMINOSIS [None]
  - LABYRINTHITIS [None]
  - LACTOSE INTOLERANCE [None]
  - MALNUTRITION [None]
  - MULTIPLE FRACTURES [None]
  - NEPHROLITHIASIS [None]
  - OEDEMA [None]
  - PELVIC FRACTURE [None]
  - PNEUMONIA [None]
  - RENAL FAILURE [None]
  - RIB FRACTURE [None]
  - SPINAL FRACTURE [None]
  - TREMOR [None]
  - VITAMIN B12 DECREASED [None]
  - VITAMIN D DECREASED [None]
